FAERS Safety Report 17760925 (Version 1)
Quarter: 2020Q2

REPORT INFORMATION
  Report Type: Spontaneous
  Country: US (occurrence: US)
  Receive Date: 20200508
  Receipt Date: 20200508
  Transmission Date: 20200714
  Serious: No
  Sender: FDA-Public Use
  Company Number: US-PFIZER INC-2020183544

PATIENT
  Age: 74 Year
  Sex: Female
  Weight: 74.84 kg

DRUGS (2)
  1. ALEVE [Suspect]
     Active Substance: NAPROXEN SODIUM
     Indication: ARTHRITIS
     Dosage: UNK
  2. PHENELZINE SULFATE. [Suspect]
     Active Substance: PHENELZINE SULFATE
     Indication: PANIC ATTACK
     Dosage: UNK, (15MG 2 TABLETS FOR 2 DAYS THEN 3 TABLETS FOR 1 DAY)
     Dates: start: 1982

REACTIONS (2)
  - Euphoric mood [Unknown]
  - Therapeutic response unexpected [Unknown]
